FAERS Safety Report 8521027-4 (Version None)
Quarter: 2012Q3

REPORT INFORMATION
  Report Type: 
  Country: None (occurrence: None)
  Receive Date: 20120719
  Receipt Date: 20120712
  Transmission Date: 20120928
  Serious: Yes (Other)
  Sender: FDA-Public Use
  Company Number: US-BAYER-2012-070901

PATIENT
  Age: 41 Year
  Sex: Female
  Weight: 73 kg

DRUGS (4)
  1. ALEVE (CAPLET) [Suspect]
     Indication: SUTURE INSERTION
     Dosage: 1 UNK, UNK
     Route: 048
     Dates: start: 20120712, end: 20120712
  2. PRILOSEC [Concomitant]
  3. PULMICORT [Concomitant]
  4. PULMICORT [Concomitant]

REACTIONS (7)
  - SNEEZING [None]
  - NASAL CONGESTION [None]
  - EYE PRURITUS [None]
  - WHEEZING [None]
  - RHINORRHOEA [None]
  - FATIGUE [None]
  - DYSPNOEA [None]
